FAERS Safety Report 22020801 (Version 1)
Quarter: 2023Q1

REPORT INFORMATION
  Report Type: Spontaneous
  Country: US (occurrence: None)
  Receive Date: 20230217
  Receipt Date: 20230217
  Transmission Date: 20230418
  Serious: Yes (Hospitalization)
  Sender: FDA-Public Use
  Company Number: None

PATIENT
  Age: 66 Year
  Sex: Male

DRUGS (18)
  1. JARDIANCE [Suspect]
     Active Substance: EMPAGLIFLOZIN
  2. Umeclidinium brm/Vilanterol tr (Anoro ellipta) [Concomitant]
  3. Aspirin ec (Asa ec) [Concomitant]
  4. LIPITOR [Concomitant]
     Active Substance: ATORVASTATIN CALCIUM
  5. COREG [Concomitant]
     Active Substance: CARVEDILOL
  6. VITAMIN D3 [Concomitant]
     Active Substance: CHOLECALCIFEROL
  7. Ubidecarenone (CO Q-10) [Concomitant]
  8. Cyanocobalamin (Vitamin B-12) [Concomitant]
  9. Omega-3 fatty acids/fish oil (Fish oil) [Concomitant]
  10. Glimperide (Amaryl) [Concomitant]
  11. Glucosam sulf/Chondroit sulf (Cosamin DS) [Concomitant]
  12. Losartan (Cozaar) [Concomitant]
  13. Metformin (Glucophage) [Concomitant]
  14. Multivitamin (Multivitamins) [Concomitant]
  15. Vitamin B complex (Super B-50 complex) [Concomitant]
  16. ESBRIET [Concomitant]
     Active Substance: PIRFENIDONE
  17. LANTUS [Concomitant]
     Active Substance: INSULIN GLARGINE
  18. JARDIANCE [Concomitant]
     Active Substance: EMPAGLIFLOZIN

REACTIONS (8)
  - Hypoxia [None]
  - Lactic acidosis [None]
  - Troponin increased [None]
  - Myocardial ischaemia [None]
  - Haemoglobin increased [None]
  - Blood glucose increased [None]
  - Carbon dioxide increased [None]
  - Neutrophil count increased [None]

NARRATIVE: CASE EVENT DATE: 20221201
